FAERS Safety Report 21211124 (Version 1)
Quarter: 2022Q3

REPORT INFORMATION
  Report Type: Spontaneous
  Country: US (occurrence: None)
  Receive Date: 20220812
  Receipt Date: 20220812
  Transmission Date: 20221027
  Serious: No
  Sender: FDA-Public Use
  Company Number: None

PATIENT
  Age: 85 Year
  Sex: Female

DRUGS (1)
  1. ODOMZO [Suspect]
     Active Substance: SONIDEGIB
     Indication: Basal cell carcinoma
     Dosage: TAKE 1 CAPSULE BY MOUTH DAILY ON EMPTY STOMACH  AT LEAST 1 HOUR BEFORE OR 2 HOURS AFTER A MEAL AS ?
     Route: 048
     Dates: start: 202107

REACTIONS (1)
  - Hospitalisation [None]
